FAERS Safety Report 20244559 (Version 1)
Quarter: 2021Q4

REPORT INFORMATION
  Report Type: Spontaneous
  Country: CN (occurrence: CN)
  Receive Date: 20211229
  Receipt Date: 20211229
  Transmission Date: 20220304
  Serious: Yes (Hospitalization)
  Sender: FDA-Public Use
  Company Number: CN-BAXTER-2021BAX042106

PATIENT
  Age: 71 Year
  Sex: Male

DRUGS (6)
  1. CYCLOPHOSPHAMIDE [Suspect]
     Active Substance: CYCLOPHOSPHAMIDE
     Indication: Diffuse large B-cell lymphoma
     Dosage: 0.9% SODIUM CHLORIDE INJECTION (500 ML) + CYCLOPHOSPHAMIDE FOR INJECTION (1 GM)
     Route: 041
     Dates: start: 20211110, end: 20211110
  2. SODIUM CHLORIDE [Suspect]
     Active Substance: SODIUM CHLORIDE
     Indication: Medication dilution
     Dosage: 0.9% SODIUM CHLORIDE INJECTION (500 ML) + CYCLOPHOSPHAMIDE FOR INJECTION (1 GM)
     Route: 041
     Dates: start: 20211110, end: 20211110
  3. SODIUM CHLORIDE [Suspect]
     Active Substance: SODIUM CHLORIDE
     Dosage: 0.9% SODIUM CHLORIDE INJECTION (100 ML) + VINCRISTINE SULFATE FOR INJECTION (2 MG)
     Route: 041
     Dates: start: 20211110, end: 20211110
  4. SODIUM CHLORIDE [Suspect]
     Active Substance: SODIUM CHLORIDE
     Dosage: 0.9% SODIUM CHLORIDE INJECTION (100 ML) + EPIRUBICIN HYDROCHLORIDE FOR INJECTION (60 MG)
     Route: 041
     Dates: start: 20211110, end: 20211110
  5. VINCRISTINE SULFATE [Suspect]
     Active Substance: VINCRISTINE SULFATE
     Indication: Diffuse large B-cell lymphoma
     Dosage: 0.9% SODIUM CHLORIDE INJECTION (100 ML) + VINCRISTINE SULFATE FOR INJECTION (2 MG)
     Route: 041
     Dates: start: 20211110, end: 20211110
  6. EPIRUBICIN [Suspect]
     Active Substance: EPIRUBICIN
     Indication: Diffuse large B-cell lymphoma
     Dosage: 0.9% SODIUM CHLORIDE INJECTION (100 ML) + EPIRUBICIN HYDROCHLORIDE FOR INJECTION (60 MG)
     Route: 041
     Dates: start: 20211110, end: 20211110

REACTIONS (3)
  - Myelosuppression [Recovering/Resolving]
  - Cough [Unknown]
  - Productive cough [Unknown]

NARRATIVE: CASE EVENT DATE: 20211101
